FAERS Safety Report 7035196-9 (Version None)
Quarter: 2010Q4

REPORT INFORMATION
  Report Type: 
  Country: None (occurrence: None)
  Receive Date: 20101008
  Receipt Date: 20100930
  Transmission Date: 20110411
  Serious: Yes (Other)
  Sender: FDA-Public Use
  Company Number: GB-B.I. PHARMACEUTICALS,INC./RIDGEFIELD-2010-DE-05481GD

PATIENT
  Sex: Male

DRUGS (5)
  1. DIPYRIDAMOLE [Suspect]
     Indication: ANTICOAGULANT THERAPY
     Dosage: 150 MG
     Route: 048
  2. ACETYLSALICYLIC ACID SRT [Suspect]
     Indication: ANTICOAGULANT THERAPY
     Dosage: 3 MG/KG
     Route: 048
  3. MYCOPHENOLATE MOFETIL [Concomitant]
     Indication: IMMUNOSUPPRESSANT DRUG THERAPY
     Dosage: 40 MG/KG
  4. TACROLIMUS [Concomitant]
     Indication: IMMUNOSUPPRESSANT DRUG THERAPY
  5. ANTIHYPERTENSIVE AGENTS [Concomitant]
     Indication: BLOOD PRESSURE MANAGEMENT

REACTIONS (1)
  - DIARRHOEA HAEMORRHAGIC [None]
